FAERS Safety Report 5824951-6 (Version None)
Quarter: 2008Q3

REPORT INFORMATION
  Report Type: 
  Country: None (occurrence: None)
  Receive Date: 20080728
  Receipt Date: 20080716
  Transmission Date: 20090109
  Serious: Yes (Disabling, Other)
  Sender: FDA-Public Use
  Company Number: JP-PFIZER INC-2008052585

PATIENT
  Sex: Female
  Weight: 35 kg

DRUGS (5)
  1. VFEND [Suspect]
     Indication: SEPSIS
     Route: 042
     Dates: start: 20071216, end: 20080120
  2. VFEND [Suspect]
     Indication: SYSTEMIC CANDIDA
  3. DRUG, UNSPECIFIED [Concomitant]
  4. MICAFUNGIN [Concomitant]
     Route: 042
  5. DIFLUCAN [Concomitant]
     Indication: SYSTEMIC CANDIDA
     Dosage: DAILY DOSE:100MG
     Route: 048

REACTIONS (1)
  - DEAFNESS [None]
